FAERS Safety Report 9175966 (Version 8)
Quarter: 2014Q1

REPORT INFORMATION
  Report Type: Report from Study
  Country: RS (occurrence: RS)
  Receive Date: 20130320
  Receipt Date: 20140221
  Transmission Date: 20141002
  Serious: Yes (Hospitalization)
  Sender: FDA-Public Use
  Company Number: RS-VERTEX PHARMACEUTICALS INC.-2012-024730

PATIENT
  Age: 53 Year
  Sex: Female
  Weight: 58 kg

DRUGS (3)
  1. VX-950 (TELAPREVIR) [Suspect]
     Indication: CHRONIC HEPATITIS C
     Dosage: 375 MG, TID
     Route: 048
     Dates: start: 20120817, end: 20121109
  2. PEGINTRON [Suspect]
     Indication: CHRONIC HEPATITIS C
     Dosage: DOSAGE FORM: POWDER FOR INJECTION
     Route: 058
     Dates: start: 20120817, end: 20121109
  3. REBETOL [Suspect]
     Indication: CHRONIC HEPATITIS C
     Dosage: DOSAGE FORM: UNSPECIFIED, 600 MG IN THE MORNING AND 400 MG IN THE EVENING
     Route: 048
     Dates: start: 20120817, end: 20121109

REACTIONS (2)
  - Pneumonia [Recovered/Resolved]
  - Anaemia [Recovered/Resolved]
